FAERS Safety Report 25184190 (Version 1)
Quarter: 2025Q2

REPORT INFORMATION
  Report Type: Spontaneous
  Country: JP (occurrence: JP)
  Receive Date: 20250410
  Receipt Date: 20250410
  Transmission Date: 20250717
  Serious: Yes (Hospitalization)
  Sender: BAYER
  Company Number: JP-BAYER-2025A048456

PATIENT
  Age: 44 Year
  Sex: Male

DRUGS (9)
  1. ADEMPAS [Suspect]
     Active Substance: RIOCIGUAT
     Indication: Pulmonary hypertension
     Dosage: DAILY DOSE 4.5 MG
     Route: 048
  2. SELEXIPAG [Concomitant]
     Active Substance: SELEXIPAG
     Indication: Pulmonary hypertension
     Dosage: DAILY DOSE .4 MG
  3. SELEXIPAG [Concomitant]
     Active Substance: SELEXIPAG
     Indication: Pulmonary hypertension
     Dosage: DAILY DOSE 1.2 MG
  4. SELEXIPAG [Concomitant]
     Active Substance: SELEXIPAG
     Indication: Pulmonary hypertension
     Dosage: DAILY DOSE 1.6 MG
  5. SELEXIPAG [Concomitant]
     Active Substance: SELEXIPAG
     Indication: Pulmonary hypertension
     Dosage: DAILY DOSE 2.4 MG
  6. OXYGEN [Concomitant]
     Active Substance: OXYGEN
     Dosage: DAILY DOSE 3 L
  7. OXYGEN [Concomitant]
     Active Substance: OXYGEN
     Dosage: DAILY DOSE 2 L
  8. DOBUTAMINE [Concomitant]
     Active Substance: DOBUTAMINE HYDROCHLORIDE
  9. NITRIC OXIDE [Concomitant]
     Active Substance: NITRIC OXIDE
     Route: 055

REACTIONS (4)
  - Haemoptysis [None]
  - Haemoptysis [None]
  - Pneumonia [None]
  - Septic shock [None]
